FAERS Safety Report 8605228-2 (Version None)
Quarter: 2012Q3

REPORT INFORMATION
  Report Type: 
  Country: None (occurrence: None)
  Receive Date: 20120820
  Receipt Date: 20120810
  Transmission Date: 20120928
  Serious: Yes (Hospitalization)
  Sender: FDA-Public Use
  Company Number: US-US-EMD SERONO, INC.-7147495

PATIENT
  Sex: Female

DRUGS (3)
  1. PROZAC [Concomitant]
     Indication: EMOTIONAL DISORDER
  2. REBIF [Suspect]
     Indication: PRODUCT USED FOR UNKNOWN INDICATION
     Route: 058
     Dates: end: 20110901
  3. REBIF [Suspect]
     Route: 058
     Dates: end: 20120601

REACTIONS (7)
  - DEHYDRATION [None]
  - MALAISE [None]
  - URINARY INCONTINENCE [None]
  - ANAEMIA [None]
  - EMOTIONAL DISORDER [None]
  - FALL [None]
  - FAECAL INCONTINENCE [None]
